FAERS Safety Report 7531540-4 (Version None)
Quarter: 2011Q2

REPORT INFORMATION
  Report Type: 
  Country: None (occurrence: None)
  Receive Date: 20110606
  Receipt Date: 20110606
  Transmission Date: 20111010
  Serious: No
  Sender: FDA-Public Use
  Company Number: None

PATIENT
  Age: 10 Year
  Sex: Male
  Weight: 29.0302 kg

DRUGS (1)
  1. STRATTERA [Suspect]
     Indication: ATTENTION DEFICIT/HYPERACTIVITY DISORDER
     Dosage: 25MG  ONE A DAY PO
     Route: 048
     Dates: start: 20110201, end: 20110523

REACTIONS (2)
  - GAIT DISTURBANCE [None]
  - PERONEAL MUSCULAR ATROPHY [None]
